FAERS Safety Report 9908678 (Version 1)
Quarter: 2014Q1

REPORT INFORMATION
  Report Type: Spontaneous
  Country: US (occurrence: None)
  Receive Date: 20140214
  Receipt Date: 20140214
  Transmission Date: 20141002
  Serious: Yes (Hospitalization)
  Sender: FDA-Public Use
  Company Number: None

PATIENT
  Age: 69 Year
  Sex: Female
  Weight: 69.1 kg

DRUGS (17)
  1. DURAGESIC [Suspect]
     Indication: PAIN
     Dosage: CHRONIC
     Route: 061
  2. OXYCODONE [Suspect]
     Indication: PAIN
     Dosage: 15MGX2 QID PO?CHRONIC
     Route: 048
  3. KETAMINE [Suspect]
  4. PREGABALIN [Suspect]
  5. LIDODERM [Suspect]
  6. LEVAQUIN [Concomitant]
  7. TESSALON [Concomitant]
  8. NUVIGIL [Concomitant]
  9. ASA [Concomitant]
  10. CALTRATE [Concomitant]
  11. CHOLECALCEIFEROL [Concomitant]
  12. PREMARIN [Concomitant]
  13. VOLTAREN [Concomitant]
  14. CLARITIN [Concomitant]
  15. ROBAXIN [Concomitant]
  16. MIRTAZAPINE [Concomitant]
  17. OMEPRAZOLE [Concomitant]

REACTIONS (7)
  - Unresponsive to stimuli [None]
  - Hypoxia [None]
  - Respiratory failure [None]
  - Hypercapnia [None]
  - Sedation [None]
  - Vomiting [None]
  - Somnolence [None]
